FAERS Safety Report 20965684 (Version 2)
Quarter: 2022Q3

REPORT INFORMATION
  Report Type: Spontaneous
  Country: US (occurrence: US)
  Receive Date: 20220616
  Receipt Date: 20220727
  Transmission Date: 20221027
  Serious: No
  Sender: FDA-Public Use
  Company Number: US-BRISTOL-MYERS SQUIBB COMPANY-2022-045772

PATIENT
  Age: 68 Year
  Sex: Female
  Weight: 88 kg

DRUGS (3)
  1. ELIQUIS [Suspect]
     Active Substance: APIXABAN
     Indication: Thrombosis
     Dosage: DOSE : 5 MG;     FREQ : TWICE DAILY
     Route: 048
     Dates: start: 202111
  2. ELIQUIS [Suspect]
     Active Substance: APIXABAN
     Indication: Deep vein thrombosis
  3. ELIQUIS [Suspect]
     Active Substance: APIXABAN
     Indication: Pulmonary embolism

REACTIONS (7)
  - Atrophic vulvovaginitis [Unknown]
  - Vulvovaginal pruritus [Unknown]
  - Vulvovaginal dryness [Unknown]
  - Depression [Unknown]
  - Burning sensation [Unknown]
  - Urinary tract infection [Unknown]
  - Blood pressure decreased [Unknown]

NARRATIVE: CASE EVENT DATE: 20220401
